FAERS Safety Report 5488025-9 (Version None)
Quarter: 2007Q4

REPORT INFORMATION
  Report Type: 
  Country: None (occurrence: None)
  Receive Date: 20071017
  Receipt Date: 20071010
  Transmission Date: 20080405
  Serious: Yes (Hospitalization)
  Sender: FDA-Public Use
  Company Number: AU-JNJFOC-20071002410

PATIENT
  Sex: Female

DRUGS (2)
  1. HALDOL [Suspect]
  2. HALDOL [Suspect]
     Indication: DRUG USE FOR UNKNOWN INDICATION

REACTIONS (6)
  - FALL [None]
  - GAIT DISTURBANCE [None]
  - JOINT STIFFNESS [None]
  - MYOCARDIAL INFARCTION [None]
  - PARKINSONISM [None]
  - STEREOTYPY [None]
